FAERS Safety Report 4850912-X (Version None)
Quarter: 2005Q4

REPORT INFORMATION
  Report Type: 
  Country: None (occurrence: None)
  Receive Date: 20051212
  Receipt Date: 20050919
  Transmission Date: 20060501
  Serious: Yes (Hospitalization, Other)
  Sender: FDA-Public Use
  Company Number: DE-GLAXOSMITHKLINE-D0047529A

PATIENT
  Age: 44 Year
  Sex: Female
  Weight: 67 kg

DRUGS (10)
  1. IMIGRAN [Suspect]
     Indication: HEADACHE
     Dosage: 100MG AS REQUIRED
     Route: 048
     Dates: start: 20000101
  2. KATADOLON [Concomitant]
     Indication: PAIN
     Dosage: 2TAB THREE TIMES PER DAY
     Route: 048
     Dates: start: 20030101
  3. TOPAMAX [Concomitant]
     Indication: PAIN
     Dosage: 25MG UNKNOWN
     Route: 048
     Dates: start: 20050901
  4. CITALOPRAM [Concomitant]
     Indication: DEPRESSION
     Dosage: 40MG UNKNOWN
     Route: 065
     Dates: start: 20040101
  5. AMITRIPTYLIN [Concomitant]
     Indication: DEPRESSION
     Dosage: 25MG UNKNOWN
     Route: 065
     Dates: start: 20050301
  6. MORPHINE [Concomitant]
     Dosage: 20MG TWICE PER DAY
     Route: 065
     Dates: start: 20050201
  7. MOVICOL [Concomitant]
     Route: 065
     Dates: start: 20050201
  8. VOMEX [Concomitant]
     Route: 065
  9. MCP [Concomitant]
     Route: 065
  10. EFFORTIL [Concomitant]
     Route: 065

REACTIONS (4)
  - DRUG ABUSER [None]
  - LOSS OF CONSCIOUSNESS [None]
  - MEMORY IMPAIRMENT [None]
  - RETROGRADE AMNESIA [None]
